FAERS Safety Report 8272096-0 (Version None)
Quarter: 2012Q2

REPORT INFORMATION
  Report Type: 
  Country: None (occurrence: None)
  Receive Date: 20120410
  Receipt Date: 20120330
  Transmission Date: 20120825
  Serious: Yes (Hospitalization)
  Sender: FDA-Public Use
  Company Number: US-JNJFOC-20120207201

PATIENT
  Sex: Female
  Weight: 45.7 kg

DRUGS (6)
  1. REMICADE [Suspect]
     Indication: CROHN'S DISEASE
     Route: 042
     Dates: start: 20111228
  2. PREDNISONE TAB [Concomitant]
  3. OMEPRAZOLE [Concomitant]
  4. ASCORBIC ACID [Concomitant]
  5. MERCAPTOPURINE [Concomitant]
  6. IRON [Concomitant]

REACTIONS (1)
  - OBSTRUCTION GASTRIC [None]
